FAERS Safety Report 4697957-0 (Version None)
Quarter: 2005Q2

REPORT INFORMATION
  Report Type: 
  Country: None (occurrence: None)
  Receive Date: 20050119
  Receipt Date: 20050119
  Transmission Date: 20051028
  Serious: No
  Sender: FDA-Public Use
  Company Number: None

PATIENT
  Sex: Female

DRUGS (2)
  1. PAROXETINE HCL [Suspect]
     Indication: BIPOLAR DISORDER
     Dates: start: 20000101
  2. CARBAMAZEPINE [Suspect]
     Indication: ANXIETY
     Dates: start: 20000101

REACTIONS (3)
  - DRUG EFFECT DECREASED [None]
  - DRUG INTOLERANCE [None]
  - THERAPEUTIC RESPONSE UNEXPECTED WITH DRUG SUBSTITUTION [None]
